FAERS Safety Report 12213236 (Version 3)
Quarter: 2016Q2

REPORT INFORMATION
  Report Type: Report from Study
  Country: US (occurrence: US)
  Receive Date: 20160328
  Receipt Date: 20160424
  Transmission Date: 20160815
  Serious: Yes (Disabling)
  Sender: FDA-Public Use
  Company Number: PHEH2016US006819

PATIENT
  Age: 84 Year
  Sex: Male
  Weight: 69 kg

DRUGS (1)
  1. GLEEVEC [Suspect]
     Active Substance: IMATINIB MESYLATE
     Indication: CHRONIC MYELOID LEUKAEMIA
     Dosage: 400 MG, QD
     Route: 048
     Dates: start: 201401, end: 20160201

REACTIONS (16)
  - Blister [Not Recovered/Not Resolved]
  - Urticaria [Unknown]
  - Eyelid oedema [Unknown]
  - Chills [Unknown]
  - Stress [Unknown]
  - Pruritus [Unknown]
  - Papule [Unknown]
  - Rash [Not Recovered/Not Resolved]
  - Arterial occlusive disease [Unknown]
  - Ocular hyperaemia [Unknown]
  - Eye swelling [Unknown]
  - Skin swelling [Unknown]
  - Dyspnoea [Unknown]
  - Peripheral swelling [Not Recovered/Not Resolved]
  - Rash erythematous [Recovered/Resolved]
  - Acne [Unknown]

NARRATIVE: CASE EVENT DATE: 201505
